FAERS Safety Report 21535577 (Version 1)
Quarter: 2022Q4

REPORT INFORMATION
  Report Type: Report from Study
  Country: US (occurrence: US)
  Receive Date: 20221101
  Receipt Date: 20221101
  Transmission Date: 20230113
  Serious: No
  Sender: FDA-Public Use
  Company Number: US-ABBVIE-4163715

PATIENT
  Age: 24 Year
  Sex: Male

DRUGS (1)
  1. SKYRIZI [Suspect]
     Active Substance: RISANKIZUMAB-RZAA
     Indication: Psoriasis
     Route: 058
     Dates: start: 20221012

REACTIONS (6)
  - Nausea [Recovered/Resolved]
  - Headache [Recovered/Resolved]
  - Rhinorrhoea [Not Recovered/Not Resolved]
  - Dizziness [Unknown]
  - Vomiting [Unknown]
  - Fear of injection [Unknown]

NARRATIVE: CASE EVENT DATE: 20221001
